FAERS Safety Report 14244092 (Version 1)
Quarter: 2017Q4

REPORT INFORMATION
  Report Type: Report from Study
  Country: IN (occurrence: IN)
  Receive Date: 20171201
  Receipt Date: 20171201
  Transmission Date: 20180321
  Serious: Yes (Other)
  Sender: FDA-Public Use
  Company Number: IN-BAYER-2017-219398

PATIENT
  Age: 71 Year
  Sex: Female

DRUGS (2)
  1. NEXAVAR [Suspect]
     Active Substance: SORAFENIB
     Indication: HEPATOCELLULAR CARCINOMA
     Dosage: 200 MG, QD, IN MORNING
  2. NEXAVAR [Suspect]
     Active Substance: SORAFENIB
     Indication: HEPATOCELLULAR CARCINOMA
     Dosage: 200 MG, BID, ONE IN THE MORNING AND ONE IN THE NIGHT
     Route: 048
     Dates: start: 20170808, end: 2017

REACTIONS (3)
  - Diarrhoea [None]
  - Adverse drug reaction [None]
  - Diarrhoea [Not Recovered/Not Resolved]
